FAERS Safety Report 15753844 (Version 4)
Quarter: 2019Q3

REPORT INFORMATION
  Report Type: Report from Study
  Country: BR (occurrence: BR)
  Receive Date: 20181222
  Receipt Date: 20190905
  Transmission Date: 20191004
  Serious: Yes (Other)
  Sender: FDA-Public Use
  Company Number: PHHY2018BR097086

PATIENT
  Age: 55 Year
  Sex: Female
  Weight: 82 kg

DRUGS (11)
  1. XOLAIR [Suspect]
     Active Substance: OMALIZUMAB
     Dosage: 600 MG, UNK
     Route: 058
     Dates: start: 201908
  2. ALEKTOS [Concomitant]
     Active Substance: BILASTINE
     Indication: ANTIALLERGIC THERAPY
     Dosage: 1 DF, Q6H
     Route: 065
  3. VALDOXAN [Concomitant]
     Active Substance: AGOMELATINE
     Indication: ANTIDEPRESSANT THERAPY
     Dosage: 1 DF, QHS
     Route: 065
  4. XOLAIR [Suspect]
     Active Substance: OMALIZUMAB
     Dosage: 300 MG, UNK
     Route: 058
     Dates: start: 20190315
  5. XOLAIR [Suspect]
     Active Substance: OMALIZUMAB
     Dosage: 600 MG, UNK
     Route: 058
     Dates: start: 201907
  6. XOLAIR [Suspect]
     Active Substance: OMALIZUMAB
     Indication: URTICARIA
     Dosage: 300 MG, QMO
     Route: 058
     Dates: start: 20180227
  7. XOLAIR [Suspect]
     Active Substance: OMALIZUMAB
     Indication: CHRONIC SPONTANEOUS URTICARIA
     Dosage: 300 MG, UNK
     Route: 058
     Dates: start: 201810
  8. MONTELUKAST [Concomitant]
     Active Substance: MONTELUKAST SODIUM
     Indication: PRODUCT USED FOR UNKNOWN INDICATION
     Dosage: UNK
     Route: 065
  9. XOLAIR [Suspect]
     Active Substance: OMALIZUMAB
     Dosage: 300 MG, UNK
     Route: 058
     Dates: start: 20181127
  10. ZOLPIDEM [Concomitant]
     Active Substance: ZOLPIDEM TARTRATE
     Indication: SLEEP DISORDER
     Dosage: 1 DF, QHS
     Route: 065
  11. SANDIMMUNE NEORAL [Suspect]
     Active Substance: CYCLOSPORINE
     Indication: URTICARIA CHRONIC
     Dosage: 50 MG, BID
     Route: 065
     Dates: start: 201808, end: 201808

REACTIONS (20)
  - Agitation [Unknown]
  - Generalised oedema [Recovering/Resolving]
  - Tremor [Unknown]
  - Drug ineffective [Unknown]
  - Insomnia [Recovering/Resolving]
  - Body temperature increased [Unknown]
  - Swelling [Unknown]
  - Product use in unapproved indication [Unknown]
  - Burning sensation [Unknown]
  - Product storage error [Unknown]
  - Depressed mood [Unknown]
  - Dizziness [Recovered/Resolved]
  - Weight increased [Not Recovered/Not Resolved]
  - Blood glucose increased [Recovering/Resolving]
  - Hypothyroidism [Unknown]
  - Therapeutic product effect decreased [Unknown]
  - Urticaria [Not Recovered/Not Resolved]
  - Angioedema [Unknown]
  - Swelling face [Not Recovered/Not Resolved]
  - Pruritus [Not Recovered/Not Resolved]

NARRATIVE: CASE EVENT DATE: 201808
